FAERS Safety Report 11010185 (Version 5)
Quarter: 2016Q1

REPORT INFORMATION
  Report Type: Spontaneous
  Country: US (occurrence: US)
  Receive Date: 20150410
  Receipt Date: 20160113
  Transmission Date: 20160525
  Serious: Yes (Hospitalization, Other)
  Sender: FDA-Public Use
  Company Number: US-JNJFOC-20150404124

PATIENT
  Sex: Male

DRUGS (2)
  1. RISPERIDONE. [Suspect]
     Active Substance: RISPERIDONE
     Indication: PRODUCT USED FOR UNKNOWN INDICATION
     Route: 065
  2. RISPERDAL [Suspect]
     Active Substance: RISPERIDONE
     Indication: POST-TRAUMATIC STRESS DISORDER
     Route: 048
     Dates: start: 2011

REACTIONS (17)
  - Gynaecomastia [Unknown]
  - Depression [Unknown]
  - Erectile dysfunction [Unknown]
  - Off label use [Unknown]
  - Suicidal ideation [Recovered/Resolved]
  - Cellulitis [Unknown]
  - Infertility [Unknown]
  - Product use issue [Unknown]
  - Dyssomnia [Unknown]
  - Testicular pain [Unknown]
  - Loss of libido [Unknown]
  - Gastrointestinal disorder [Unknown]
  - Motor dysfunction [Unknown]
  - Testicular atrophy [Unknown]
  - Hyperprolactinaemia [Unknown]
  - Anxiety [Unknown]
  - Endocrine disorder [Unknown]

NARRATIVE: CASE EVENT DATE: 2011
